FAERS Safety Report 15736250 (Version 1)
Quarter: 2018Q4

REPORT INFORMATION
  Report Type: Spontaneous
  Country: US (occurrence: US)
  Receive Date: 20181217
  Receipt Date: 20181217
  Transmission Date: 20190205
  Serious: No
  Sender: FDA-Public Use
  Company Number: None

PATIENT
  Age: 42 Year
  Sex: Female

DRUGS (1)
  1. CREST PRO-HEALTH ADVANCED [Suspect]
     Active Substance: STANNOUS FLUORIDE

REACTIONS (3)
  - Burn oral cavity [None]
  - Gingival bleeding [None]
  - Gingival discomfort [None]

NARRATIVE: CASE EVENT DATE: 20181120
